FAERS Safety Report 7928638-5 (Version None)
Quarter: 2011Q4

REPORT INFORMATION
  Report Type: 
  Country: None (occurrence: None)
  Receive Date: 20111118
  Receipt Date: 20111107
  Transmission Date: 20120403
  Serious: Yes (Disabling, Other)
  Sender: FDA-Public Use
  Company Number: GB-MYLANLABS-2011S1022929

PATIENT
  Age: 70 Year
  Sex: Female

DRUGS (7)
  1. VERAPAMIL [Suspect]
     Indication: ATRIAL FIBRILLATION
  2. LOSARTAN POTASSIUM [Suspect]
  3. LISINOPRIL [Suspect]
     Indication: HYPERTENSION
  4. LOSARTAN POTASSIUM [Suspect]
  5. SULPHADIMIDINE [Concomitant]
     Indication: PRODUCT USED FOR UNKNOWN INDICATION
  6. LOSARTAN POTASSIUM [Suspect]
  7. LOSARTAN POTASSIUM [Suspect]
     Indication: HYPERTENSION

REACTIONS (14)
  - PHARYNGEAL OEDEMA [None]
  - DECREASED APPETITE [None]
  - BLOOD PRESSURE INCREASED [None]
  - DIARRHOEA [None]
  - FIBROMYALGIA [None]
  - URINARY INCONTINENCE [None]
  - COUGH [None]
  - SLEEP DISORDER [None]
  - ABDOMINAL PAIN [None]
  - MUSCLE SPASMS [None]
  - VOCAL CORD DISORDER [None]
  - RASH ERYTHEMATOUS [None]
  - ATRIAL FIBRILLATION [None]
  - DRY EYE [None]
